FAERS Safety Report 23997048 (Version 3)
Quarter: 2025Q2

REPORT INFORMATION
  Report Type: Spontaneous
  Country: MX (occurrence: MX)
  Receive Date: 20240621
  Receipt Date: 20250515
  Transmission Date: 20250716
  Serious: Yes (Other)
  Sender: NOVO NORDISK
  Company Number: MX-NOVOPROD-1238386

PATIENT
  Age: 42 Year
  Sex: Female
  Weight: 79 kg

DRUGS (4)
  1. SAXENDA [Suspect]
     Active Substance: LIRAGLUTIDE
     Dates: end: 20241201
  2. SAXENDA [Suspect]
     Active Substance: LIRAGLUTIDE
     Dates: start: 202406
  3. SAXENDA [Suspect]
     Active Substance: LIRAGLUTIDE
     Dates: start: 202406
  4. SAXENDA [Suspect]
     Active Substance: LIRAGLUTIDE
     Indication: Weight control
     Dosage: 0.6 MG, QD (FOR A WEEK)
     Dates: start: 20240522

REACTIONS (3)
  - Hypoglycaemic unconsciousness [Recovered/Resolved]
  - Weight loss poor [Unknown]
  - Inappropriate schedule of product administration [Unknown]

NARRATIVE: CASE EVENT DATE: 20240529
